FAERS Safety Report 7831737-X (Version None)
Quarter: 2011Q4

REPORT INFORMATION
  Report Type: 
  Country: None (occurrence: None)
  Receive Date: 20111021
  Receipt Date: 20111003
  Transmission Date: 20120403
  Serious: Yes (Other)
  Sender: FDA-Public Use
  Company Number: US-SANOFI-AVENTIS-2011SA067660

PATIENT
  Sex: Female

DRUGS (3)
  1. SOLOSTAR [Suspect]
  2. NOVOLOG [Concomitant]
  3. LANTUS [Suspect]

REACTIONS (3)
  - DEVICE BREAKAGE [None]
  - NO ADVERSE EVENT [None]
  - DEVICE MALFUNCTION [None]
